FAERS Safety Report 19812486 (Version 1)
Quarter: 2021Q3

REPORT INFORMATION
  Report Type: Spontaneous
  Country: BA (occurrence: BA)
  Receive Date: 20210910
  Receipt Date: 20210910
  Transmission Date: 20211014
  Serious: Yes (Other)
  Sender: FDA-Public Use
  Company Number: BA-TEVA-2021-BA-1950929

PATIENT
  Age: 37 Year
  Weight: 65 kg

DRUGS (1)
  1. CARBOPLASIN [Suspect]
     Active Substance: CARBOPLATIN
     Indication: OVARIAN CANCER
     Dosage: 450 MILLIGRAM DAILY;
     Route: 042
     Dates: start: 20210826, end: 20210826

REACTIONS (4)
  - Abdominal pain [Recovered/Resolved]
  - Chest pain [Recovered/Resolved]
  - Asphyxia [Recovered/Resolved]
  - Pruritus [Recovered/Resolved]

NARRATIVE: CASE EVENT DATE: 20210826
